FAERS Safety Report 19658395 (Version 5)
Quarter: 2022Q1

REPORT INFORMATION
  Report Type: Spontaneous
  Country: FR (occurrence: FR)
  Receive Date: 20210805
  Receipt Date: 20220218
  Transmission Date: 20220423
  Serious: No
  Sender: FDA-Public Use
  Company Number: FR-GLAXOSMITHKLINE-FRCH2021EME043195

PATIENT
  Age: 76 Year
  Sex: Female
  Weight: 96 kg

DRUGS (9)
  1. PANTOPRAZOLE [Suspect]
     Active Substance: PANTOPRAZOLE
     Indication: Gastritis
     Dosage: 20 MILLIGRAM, ONCE A DAY (20 MG, QD, EVENING )
     Route: 048
     Dates: start: 2010
  2. PANTOPRAZOLE [Suspect]
     Active Substance: PANTOPRAZOLE
     Indication: Hiatus hernia
     Dosage: 20 MILLIGRAM, ONCE A DAY (EVENING )
     Route: 048
     Dates: start: 201712
  3. ALBUTEROL [Suspect]
     Active Substance: ALBUTEROL
     Indication: Myasthenia gravis
     Dosage: 6 MILLIGRAM, ONCE A DAY (2 MG MORNING, NOON, EVENING)
     Route: 048
     Dates: start: 201803, end: 20201006
  4. ALBUTEROL [Suspect]
     Active Substance: ALBUTEROL
     Indication: Congenital myasthenic syndrome
     Dosage: 6 MILLIGRAM, ONCE A DAY, 2 MG, TID ( (MORNING, NOON, EVENING)
     Route: 048
     Dates: start: 20190129, end: 20201006
  5. ALBUTEROL [Suspect]
     Active Substance: ALBUTEROL
     Dosage: 6 MILLIGRAM, ONCE A DAY (2 MG MORNING, NOON, EVENING)
     Route: 048
     Dates: start: 20210525
  6. HYDROCHLOROTHIAZIDE\IRBESARTAN [Suspect]
     Active Substance: HYDROCHLOROTHIAZIDE\IRBESARTAN
     Indication: Hypertension
     Dosage: 150 MILLIGRAM, ONCE A DAY (150 MG, QD)
     Route: 048
     Dates: start: 2010
  7. HYDROCHLOROTHIAZIDE\IRBESARTAN [Suspect]
     Active Substance: HYDROCHLOROTHIAZIDE\IRBESARTAN
     Dosage: 150 MILLIGRAM, ONCE A DAY (150 MG, QD)
     Route: 048
     Dates: start: 201712
  8. ESOMEPRAZOLE [Concomitant]
     Active Substance: ESOMEPRAZOLE
     Indication: Product used for unknown indication
     Dosage: 20 MILLIGRAM
     Route: 065
  9. LEVOTHYROXINE [Concomitant]
     Active Substance: LEVOTHYROXINE
     Indication: Product used for unknown indication
     Dosage: 12.5 MICROGRAM
     Route: 065

REACTIONS (1)
  - No adverse event [Recovering/Resolving]
